FAERS Safety Report 8184307-0 (Version None)
Quarter: 2012Q1

REPORT INFORMATION
  Report Type: 
  Country: None (occurrence: None)
  Receive Date: 20120305
  Receipt Date: 20120227
  Transmission Date: 20120608
  Serious: Yes (Other)
  Sender: FDA-Public Use
  Company Number: US-TEVA-325031USA

PATIENT

DRUGS (3)
  1. TOPIRAMATE [Suspect]
     Route: 064
  2. PHENYTOIN [Suspect]
     Route: 064
  3. CARBAMAZEPINE [Suspect]
     Route: 064

REACTIONS (4)
  - LIMB MALFORMATION [None]
  - CONGENITAL CARDIOVASCULAR ANOMALY [None]
  - PULMONARY MALFORMATION [None]
  - CONGENITAL CENTRAL NERVOUS SYSTEM ANOMALY [None]
